FAERS Safety Report 7251656-X (Version None)
Quarter: 2011Q1

REPORT INFORMATION
  Report Type: 
  Country: None (occurrence: None)
  Receive Date: 20110128
  Receipt Date: 20110127
  Transmission Date: 20110831
  Serious: No
  Sender: FDA-Public Use
  Company Number: US-ABBOTT-11P-163-0697103-00

PATIENT
  Sex: Male
  Weight: 63.56 kg

DRUGS (6)
  1. METAMUCIL-2 [Concomitant]
     Indication: CONSTIPATION
  2. HYTRIN [Concomitant]
     Indication: PROSTATOMEGALY
  3. SIMCOR [Suspect]
     Route: 048
     Dates: start: 20101227, end: 20110103
  4. METOPROLOL [Concomitant]
     Indication: HYPERTENSION
  5. SIMCOR [Suspect]
     Indication: LIPOPROTEIN (A) INCREASED
     Dosage: 500/20 MG, 1 IN 1 DAY
     Route: 048
     Dates: start: 20101213, end: 20101221
  6. SIMCOR [Suspect]
     Dosage: 500/20 MG, 2 TABS DAILY
     Route: 048

REACTIONS (4)
  - FLUSHING [None]
  - MUSCLE SPASMS [None]
  - ABDOMINAL PAIN UPPER [None]
  - SOMNOLENCE [None]
